FAERS Safety Report 25069391 (Version 2)
Quarter: 2025Q1

REPORT INFORMATION
  Report Type: Report from Study
  Country: VA (occurrence: VA)
  Receive Date: 20250312
  Receipt Date: 20250327
  Transmission Date: 20250409
  Serious: No
  Sender: Unknown Manufacturer
  Company Number: VA-MIRUM PHARMACEUTICALS, INC.-VA-MIR-25-00109

PATIENT

DRUGS (2)
  1. MARALIXIBAT [Suspect]
     Active Substance: MARALIXIBAT
     Indication: Progressive familial intrahepatic cholestasis
     Route: 048
     Dates: start: 202412, end: 20250207
  2. URSODIOL [Concomitant]
     Active Substance: URSODIOL
     Indication: Product used for unknown indication
     Route: 065

REACTIONS (5)
  - Bile acids increased [Unknown]
  - Scratch [Not Recovered/Not Resolved]
  - Pruritus [Unknown]
  - Therapy interrupted [Unknown]
  - Product temperature excursion issue [Unknown]

NARRATIVE: CASE EVENT DATE: 20250201
